FAERS Safety Report 22540767 (Version 1)
Quarter: 2023Q2

REPORT INFORMATION
  Report Type: Report from Study
  Country: BR (occurrence: BR)
  Receive Date: 20230609
  Receipt Date: 20230609
  Transmission Date: 20230722
  Serious: Yes (Death, Other)
  Sender: FDA-Public Use
  Company Number: BR-SUN PHARMACEUTICAL INDUSTRIES LTD-2023R1-392985

PATIENT
  Age: 51 Year
  Sex: Female

DRUGS (1)
  1. KETOCONAZOLE [Suspect]
     Active Substance: KETOCONAZOLE
     Indication: Prophylaxis
     Dosage: UNK
     Route: 065

REACTIONS (1)
  - Acute myocardial infarction [Fatal]
